FAERS Safety Report 6944649-0 (Version None)
Quarter: 2010Q3

REPORT INFORMATION
  Report Type: 
  Country: None (occurrence: None)
  Receive Date: 20100827
  Receipt Date: 20100813
  Transmission Date: 20110219
  Serious: Yes (Other)
  Sender: FDA-Public Use
  Company Number: PHHY2010US53937

PATIENT
  Age: 61 Year
  Sex: Female

DRUGS (6)
  1. GLEEVEC [Suspect]
     Indication: NEOPLASM MALIGNANT
     Dosage: 400 MG
     Route: 048
     Dates: start: 20100101
  2. LISINOPRIL [Concomitant]
  3. CRESTOR [Concomitant]
  4. IRON SUPPLEMENTS [Concomitant]
  5. ASPIRIN [Concomitant]
  6. CALCIUM [Concomitant]

REACTIONS (5)
  - ABDOMINAL PAIN [None]
  - FREQUENT BOWEL MOVEMENTS [None]
  - HAEMATOCHEZIA [None]
  - MUSCLE SPASMS [None]
  - SKIN DISCOLOURATION [None]
